FAERS Safety Report 18718657 (Version 3)
Quarter: 2021Q1

REPORT INFORMATION
  Report Type: Report from Study
  Country: DE (occurrence: DE)
  Receive Date: 20210108
  Receipt Date: 20210120
  Transmission Date: 20210419
  Serious: Yes (Death, Hospitalization, Other)
  Sender: FDA-Public Use
  Company Number: DE-TAKEDA-DE201923381

PATIENT
  Age: 62 Year
  Sex: Male
  Weight: 50 kg

DRUGS (4)
  1. TEDUGLUTIDE [Suspect]
     Active Substance: TEDUGLUTIDE
     Indication: SHORT-BOWEL SYNDROME
     Dosage: 0.14 MILLIGRAM, 1X/DAY:QD
     Route: 058
     Dates: start: 20160105
  2. TEDUGLUTIDE [Suspect]
     Active Substance: TEDUGLUTIDE
     Indication: SHORT-BOWEL SYNDROME
     Dosage: 0.14 MILLIGRAM, 1X/DAY:QD
     Route: 058
     Dates: start: 20160105
  3. TEDUGLUTIDE [Suspect]
     Active Substance: TEDUGLUTIDE
     Indication: SHORT-BOWEL SYNDROME
     Dosage: 0.14 MILLIGRAM, 1X/DAY:QD
     Route: 058
     Dates: start: 20160105
  4. TEDUGLUTIDE [Suspect]
     Active Substance: TEDUGLUTIDE
     Indication: SHORT-BOWEL SYNDROME
     Dosage: 0.14 MILLIGRAM, 1X/DAY:QD
     Route: 058
     Dates: start: 20160105

REACTIONS (3)
  - Death [Fatal]
  - Nephrolithiasis [Recovered/Resolved]
  - Pain in extremity [Not Recovered/Not Resolved]

NARRATIVE: CASE EVENT DATE: 20190706
